FAERS Safety Report 6037536-6 (Version None)
Quarter: 2009Q1

REPORT INFORMATION
  Report Type: 
  Country: None (occurrence: None)
  Receive Date: 20090114
  Receipt Date: 20090106
  Transmission Date: 20090719
  Serious: Yes (Hospitalization)
  Sender: FDA-Public Use
  Company Number: US-ELI_LILLY_AND_COMPANY-US200901000596

PATIENT
  Sex: Female
  Weight: 96.145 kg

DRUGS (10)
  1. BYETTA [Suspect]
     Indication: TYPE 2 DIABETES MELLITUS
     Dosage: 10 UG, 2/D
     Route: 058
     Dates: start: 20050101
  2. BYETTA [Suspect]
     Dosage: 10 UG, 2/D
     Route: 058
  3. METFORMIN HCL [Concomitant]
     Indication: TYPE 2 DIABETES MELLITUS
     Dosage: 1000 MG, 2/D
     Route: 048
  4. AMARYL [Concomitant]
     Dosage: 4 MG, DAILY (1/D)
     Route: 048
  5. ACTOS [Concomitant]
     Dosage: 45 MG, DAILY (1/D)
     Route: 048
  6. HYDROCHLOROTHIAZIDE [Concomitant]
     Dosage: 50 MG, DAILY (1/D)
     Route: 048
  7. VERAPAMIL [Concomitant]
     Dosage: 240 MG, DAILY (1/D)
     Route: 048
  8. ZOLOFT [Concomitant]
     Dosage: 200 MG, DAILY (1/D)
     Route: 048
  9. PROTONIX [Concomitant]
     Dosage: 40 MG, DAILY (1/D)
     Route: 048
  10. ASPIRIN [Concomitant]
     Dosage: 325 MG, DAILY (1/D)
     Route: 048

REACTIONS (2)
  - ARTHRALGIA [None]
  - DEPRESSION [None]
